FAERS Safety Report 8614791-7 (Version None)
Quarter: 2012Q3

REPORT INFORMATION
  Report Type: 
  Country: None (occurrence: None)
  Receive Date: 20120823
  Receipt Date: 20120820
  Transmission Date: 20120928
  Serious: Yes (Other)
  Sender: FDA-Public Use
  Company Number: US-PFIZER INC-2012203825

PATIENT
  Age: 73 Year
  Sex: Female
  Weight: 65.76 kg

DRUGS (3)
  1. ADVIL PM [Suspect]
     Indication: SLEEP DISORDER
     Dosage: 200 MG (ON AND OFF ), AS NEEDED
     Dates: end: 20120816
  2. ATIVAN [Concomitant]
     Indication: ANXIETY
     Dosage: .5MG AS NEEDED COUPLE OF TIMES IN A WEEK
  3. MECLIZINE [Suspect]
     Indication: DIZZINESS
     Dosage: 25MG AS NEEDED UP TO 3 TABLETS A DAY

REACTIONS (8)
  - DRUG EFFECT DECREASED [None]
  - HEADACHE [None]
  - FATIGUE [None]
  - DRY MOUTH [None]
  - DIZZINESS [None]
  - PLATELET COUNT DECREASED [None]
  - BLOOD PRESSURE INCREASED [None]
  - BALANCE DISORDER [None]
